FAERS Safety Report 9473898 (Version 1)
Quarter: 2013Q3

REPORT INFORMATION
  Report Type: Spontaneous
  Country: GB (occurrence: GB)
  Receive Date: 20130823
  Receipt Date: 20130823
  Transmission Date: 20140515
  Serious: Yes (Disabling, Other)
  Sender: FDA-Public Use
  Company Number: PHHY2013GB088023

PATIENT
  Age: 83 Year
  Sex: Female
  Weight: 73.47 kg

DRUGS (5)
  1. CODEINE PHOSPHATE [Suspect]
     Indication: OSTEOARTHRITIS
     Route: 048
     Dates: start: 1952, end: 2013
  2. TRAMADOL [Suspect]
     Indication: MASTECTOMY
     Route: 048
     Dates: start: 1997, end: 1997
  3. ACETYLSALICYLIC ACID [Suspect]
     Indication: OSTEOARTHRITIS
     Route: 048
     Dates: start: 1952, end: 2013
  4. NSAID^S [Suspect]
     Indication: OSTEOARTHRITIS
     Route: 048
     Dates: start: 1952, end: 2013
  5. PARACETAMOL [Concomitant]

REACTIONS (4)
  - Pain [Not Recovered/Not Resolved]
  - Inadequate analgesia [Not Recovered/Not Resolved]
  - Drug ineffective [Unknown]
  - Drug intolerance [Unknown]
